FAERS Safety Report 25691481 (Version 1)
Quarter: 2025Q3

REPORT INFORMATION
  Report Type: Spontaneous
  Country: US (occurrence: US)
  Receive Date: 20250818
  Receipt Date: 20250818
  Transmission Date: 20251020
  Serious: No
  Sender: JOURNEY MEDICAL CORPORATION
  Company Number: US-JOURNEY MEDICAL CORPORATION-2025JNY00075

PATIENT
  Age: 34 Year
  Sex: Female

DRUGS (1)
  1. EMROSI [Suspect]
     Active Substance: MINOCYCLINE HYDROCHLORIDE

REACTIONS (3)
  - Headache [Unknown]
  - Dizziness [Unknown]
  - Vision blurred [Unknown]
